FAERS Safety Report 16793990 (Version 1)
Quarter: 2019Q3

REPORT INFORMATION
  Report Type: Report from Study
  Country: CA (occurrence: CA)
  Receive Date: 20190911
  Receipt Date: 20190911
  Transmission Date: 20191005
  Serious: Yes (Other)
  Sender: FDA-Public Use
  Company Number: CA-BEH-2019106624

PATIENT

DRUGS (1)
  1. ALBUMIN HUMAN (GENERIC) [Suspect]
     Active Substance: ALBUMIN HUMAN
     Indication: POSTURAL ORTHOSTATIC TACHYCARDIA SYNDROME
     Route: 042

REACTIONS (1)
  - Venous thrombosis [Unknown]
